FAERS Safety Report 11775040 (Version 4)
Quarter: 2015Q4

REPORT INFORMATION
  Report Type: Report from Study
  Country: US (occurrence: US)
  Receive Date: 20151124
  Receipt Date: 20151218
  Transmission Date: 20160304
  Serious: Yes (Death, Hospitalization)
  Sender: FDA-Public Use
  Company Number: US-ACTELION-A-US2015-118888

PATIENT
  Age: 41 Year
  Sex: Female

DRUGS (5)
  1. COUMADIN [Concomitant]
     Active Substance: WARFARIN SODIUM
  2. OXYGEN. [Concomitant]
     Active Substance: OXYGEN
  3. MACITENTAN [Suspect]
     Active Substance: MACITENTAN
     Indication: PULMONARY ARTERIAL HYPERTENSION
     Dosage: 10 MG, QD
     Route: 048
     Dates: start: 20140109
  4. FLOLAN [Concomitant]
     Active Substance: EPOPROSTENOL SODIUM
  5. LASIX [Concomitant]
     Active Substance: FUROSEMIDE

REACTIONS (19)
  - Hypotension [Unknown]
  - Dyspnoea [Recovering/Resolving]
  - Hepatomegaly [Unknown]
  - Pulmonary arterial hypertension [Unknown]
  - Syncope [Unknown]
  - Death [Fatal]
  - Condition aggravated [Unknown]
  - Abdominal distension [Unknown]
  - Blood creatinine increased [Unknown]
  - Terminal state [Unknown]
  - Renal disorder [Unknown]
  - Localised oedema [Unknown]
  - Oedema [Unknown]
  - Cough [Unknown]
  - Fluid overload [Recovering/Resolving]
  - Weight decreased [Unknown]
  - Fluid retention [Unknown]
  - Oedema peripheral [Unknown]
  - Oxygen saturation decreased [Unknown]

NARRATIVE: CASE EVENT DATE: 20151201
